FAERS Safety Report 7490675-5 (Version None)
Quarter: 2011Q2

REPORT INFORMATION
  Report Type: 
  Country: None (occurrence: None)
  Receive Date: 20110519
  Receipt Date: 20110418
  Transmission Date: 20111010
  Serious: Yes (Hospitalization, Other)
  Sender: FDA-Public Use
  Company Number: US-BAYER-2011-027721

PATIENT
  Age: 20 Year
  Weight: 65.76 kg

DRUGS (2)
  1. YASMIN [Suspect]
     Indication: CONTRACEPTION
  2. IBUPROFEN [Concomitant]
     Dosage: UNK
     Dates: start: 19990101

REACTIONS (4)
  - PROCEDURAL COMPLICATION [None]
  - CHOLECYSTECTOMY [None]
  - CHOLECYSTITIS [None]
  - ABDOMINAL PAIN [None]
